FAERS Safety Report 10884724 (Version 1)
Quarter: 2015Q1

REPORT INFORMATION
  Report Type: Spontaneous
  Country: US (occurrence: US)
  Receive Date: 20150304
  Receipt Date: 20150304
  Transmission Date: 20150721
  Serious: No
  Sender: FDA-Public Use
  Company Number: US-CELGENEUS-USA-2015015010

PATIENT
  Age: 71 Year
  Sex: Female

DRUGS (1)
  1. THALOMID [Suspect]
     Active Substance: THALIDOMIDE
     Indication: ANAEMIA
     Dosage: 50 MILLIGRAM
     Route: 048
     Dates: start: 201306

REACTIONS (3)
  - Fatigue [Unknown]
  - Dysphonia [Unknown]
  - Oedema peripheral [Unknown]

NARRATIVE: CASE EVENT DATE: 20150122
